FAERS Safety Report 23652514 (Version 3)
Quarter: 2024Q2

REPORT INFORMATION
  Report Type: Spontaneous
  Country: US (occurrence: US)
  Receive Date: 20240320
  Receipt Date: 20240405
  Transmission Date: 20240716
  Serious: Yes (Hospitalization, Other)
  Sender: FDA-Public Use
  Company Number: US-ORGANON-O2403USA001820

PATIENT
  Age: 30 Year
  Sex: Female
  Weight: 68.94 kg

DRUGS (1)
  1. NEXPLANON [Suspect]
     Active Substance: ETONOGESTREL
     Indication: Contraception
     Dosage: 1 IMPLANT
     Route: 059
     Dates: start: 20231201, end: 20231206

REACTIONS (5)
  - Cellulitis [Unknown]
  - Pyrexia [Unknown]
  - Chills [Unknown]
  - Suspected product contamination [Unknown]
  - Complication of device removal [Recovered/Resolved]

NARRATIVE: CASE EVENT DATE: 20231201
